FAERS Safety Report 17771214 (Version 1)
Quarter: 2020Q2

REPORT INFORMATION
  Report Type: Spontaneous
  Country: DE (occurrence: DE)
  Receive Date: 20200512
  Receipt Date: 20200512
  Transmission Date: 20200714
  Serious: Yes (Hospitalization)
  Sender: FDA-Public Use
  Company Number: DE-MYLANLABS-2020M1045701

PATIENT
  Age: 76 Year
  Sex: Male

DRUGS (4)
  1. URAPIDIL [Concomitant]
     Active Substance: URAPIDIL
     Dosage: 60 MILLIGRAM, BID (60 MG, 1-0-0-1, RETARD-KAPSELN)
  2. PHENPROCOUMON [Suspect]
     Active Substance: PHENPROCOUMON
     Indication: PRODUCT USED FOR UNKNOWN INDICATION
     Dosage: 3 MILLIGRAM (3 MILLIGRAM)
  3. METOPROLOL. [Concomitant]
     Active Substance: METOPROLOL
     Dosage: 95 MILLIGRAM, BID (95 MG, 1-0-0-1, RETARD-TABLETTEN)
  4. AMLODIPINE [Suspect]
     Active Substance: AMLODIPINE BESYLATE
     Indication: PRODUCT USED FOR UNKNOWN INDICATION
     Dosage: 5 MILLIGRAM, BID (5 MG, 1-0-0-1, TABLETTEN)

REACTIONS (7)
  - Dyspnoea exertional [Unknown]
  - General physical health deterioration [Unknown]
  - Dyspnoea [Unknown]
  - Pallor [Unknown]
  - Accidental overdose [Unknown]
  - Oedema peripheral [Unknown]
  - Anaemia [Unknown]
